FAERS Safety Report 5755258-3 (Version None)
Quarter: 2008Q2

REPORT INFORMATION
  Report Type: 
  Country: None (occurrence: None)
  Receive Date: 20080529
  Receipt Date: 20080529
  Transmission Date: 20081010
  Serious: Yes (Other)
  Sender: FDA-Public Use
  Company Number: None

PATIENT
  Sex: Female
  Weight: 87.9978 kg

DRUGS (1)
  1. ZOLOFT [Suspect]
     Indication: DEPRESSION
     Dosage: 50MG QD PO
     Route: 048
     Dates: start: 20080519, end: 20080528

REACTIONS (2)
  - DRUG INEFFECTIVE [None]
  - INSOMNIA [None]
